FAERS Safety Report 12761265 (Version 1)
Quarter: 2016Q3

REPORT INFORMATION
  Report Type: Spontaneous
  Country: US (occurrence: US)
  Receive Date: 20160920
  Receipt Date: 20160920
  Transmission Date: 20161109
  Serious: No
  Sender: FDA-Public Use
  Company Number: US-AUROBINDO-AUR-APL-2015-07674

PATIENT
  Sex: Female
  Weight: 73 kg

DRUGS (2)
  1. PAROXETINE. [Suspect]
     Active Substance: PAROXETINE
     Indication: PAIN
     Dosage: 20 MG, DAILY
     Route: 048
  2. PAROXETINE. [Suspect]
     Active Substance: PAROXETINE
     Indication: SLEEP DISORDER

REACTIONS (3)
  - Pain [Unknown]
  - Sleep disorder [Unknown]
  - Off label use [Unknown]
